FAERS Safety Report 12035840 (Version 1)
Quarter: 2016Q1

REPORT INFORMATION
  Report Type: Report from Study
  Country: US (occurrence: US)
  Receive Date: 20160207
  Receipt Date: 20160207
  Transmission Date: 20160526
  Serious: No
  Sender: FDA-Public Use
  Company Number: US-ABBVIE-15K-163-1524049-00

PATIENT
  Sex: Female

DRUGS (1)
  1. HUMIRA [Suspect]
     Active Substance: ADALIMUMAB
     Indication: CROHN^S DISEASE
     Route: 058

REACTIONS (6)
  - Fear of injection [Unknown]
  - Nasopharyngitis [Not Recovered/Not Resolved]
  - Injection site bruising [Recovered/Resolved]
  - Crohn^s disease [Recovered/Resolved]
  - Drug effect decreased [Recovered/Resolved]
  - Injection site pain [Recovered/Resolved]
